FAERS Safety Report 9402637 (Version 2)
Quarter: 2013Q3

REPORT INFORMATION
  Report Type: Spontaneous
  Country: TW (occurrence: TW)
  Receive Date: 20130716
  Receipt Date: 20130723
  Transmission Date: 20140515
  Serious: Yes (Hospitalization)
  Sender: FDA-Public Use
  Company Number: TW-SANOFI-AVENTIS-2013SA070913

PATIENT
  Age: 62 Year
  Sex: Male

DRUGS (1)
  1. LEUPRORELIN ACETATE [Suspect]
     Indication: PROSTATE CANCER METASTATIC
     Route: 058

REACTIONS (5)
  - Mania [Recovered/Resolved]
  - Psychomotor hyperactivity [Recovered/Resolved]
  - Euphoric mood [Recovered/Resolved]
  - Logorrhoea [Recovered/Resolved]
  - Insomnia [Recovered/Resolved]
